FAERS Safety Report 9439998 (Version 2)
Quarter: 2013Q3

REPORT INFORMATION
  Report Type: Spontaneous
  Country: US (occurrence: US)
  Receive Date: 20130805
  Receipt Date: 20130826
  Transmission Date: 20140515
  Serious: No
  Sender: FDA-Public Use
  Company Number: US-009507513-1307USA013964

PATIENT
  Age: 70 Year
  Sex: Female
  Weight: 62.59 kg

DRUGS (9)
  1. VYTORIN [Suspect]
     Indication: BLOOD TRIGLYCERIDES INCREASED
     Dosage: 10/20 MG ONCE DAILY
     Route: 048
     Dates: end: 2013
  2. COZAAR [Concomitant]
  3. JANUVIA [Concomitant]
     Dosage: 100 MG, UNK
  4. CALCIUM (UNSPECIFIED) [Concomitant]
     Dosage: 1200-1500 MG
  5. CHOLECALCIFEROL [Concomitant]
     Dosage: 5000 UNITS VITAMIN D3
  6. FLONASE [Concomitant]
     Dosage: UNK
  7. LOSARTAN POTASSIUM TABLETS [Concomitant]
     Dosage: UNK
  8. LISINOPRIL [Concomitant]
     Dosage: UNK
  9. CALCIUM (UNSPECIFIED) (+) VITAMIN D (UNSPECIFIED) [Concomitant]
     Dosage: UNK

REACTIONS (9)
  - Feeling abnormal [Recovered/Resolved]
  - Muscle spasms [Recovered/Resolved]
  - Adverse drug reaction [Unknown]
  - Local swelling [Unknown]
  - Urticaria [Unknown]
  - Pruritus [Unknown]
  - Rash [Unknown]
  - Musculoskeletal disorder [Unknown]
  - Myalgia [Recovered/Resolved]
